FAERS Safety Report 7754208-8 (Version None)
Quarter: 2011Q3

REPORT INFORMATION
  Report Type: 
  Country: None (occurrence: None)
  Receive Date: 20110915
  Receipt Date: 20110906
  Transmission Date: 20111222
  Serious: Yes (Other)
  Sender: FDA-Public Use
  Company Number: US-ASTRAZENECA-2011SE21133

PATIENT
  Age: 85 Year
  Sex: Female

DRUGS (1)
  1. ARIMIDEX [Suspect]
     Route: 048

REACTIONS (4)
  - METASTASES TO HEART [None]
  - DRUG TOLERANCE [None]
  - BREAST CANCER METASTATIC [None]
  - BREAST CANCER [None]
